FAERS Safety Report 7651063-1 (Version None)
Quarter: 2011Q3

REPORT INFORMATION
  Report Type: 
  Country: None (occurrence: None)
  Receive Date: 20110802
  Receipt Date: 20110609
  Transmission Date: 20111222
  Serious: Yes (Other)
  Sender: FDA-Public Use
  Company Number: PHNR2003AU01269

PATIENT
  Sex: Male

DRUGS (9)
  1. CLOZAPINE [Suspect]
     Dosage: 300 MG, QD
     Route: 048
     Dates: start: 20010828
  2. CLOZAPINE [Suspect]
     Dosage: 400 MG, QD
     Route: 048
     Dates: start: 20030730
  3. CLOZAPINE [Suspect]
     Dosage: 400 MG, QD
     Route: 048
     Dates: start: 20011113
  4. CLOZAPINE [Suspect]
     Dosage: 400 MG, QD
     Route: 048
     Dates: start: 20030610
  5. CLOZAPINE [Suspect]
     Dosage: 600 MG, QD
     Route: 048
     Dates: start: 20030513
  6. CLOZAPINE [Suspect]
     Dosage: 350 MG, QD
     Route: 048
     Dates: start: 20030708
  7. CLOZAPINE [Suspect]
     Indication: SCHIZOPHRENIA, PARANOID TYPE
     Dosage: 100 MG, QD
     Route: 048
     Dates: start: 20010807
  8. CLOZAPINE [Suspect]
     Dosage: 150 MG, QD
     Route: 048
     Dates: start: 20010815
  9. CLOZAPINE [Suspect]
     Dates: end: 20040201

REACTIONS (3)
  - CARDIAC DISORDER [None]
  - INTERSTITIAL LUNG DISEASE [None]
  - ALVEOLITIS [None]
